FAERS Safety Report 7083969-9 (Version None)
Quarter: 2010Q4

REPORT INFORMATION
  Report Type: 
  Country: None (occurrence: None)
  Receive Date: 20101104
  Receipt Date: 20091009
  Transmission Date: 20110411
  Serious: No
  Sender: FDA-Public Use
  Company Number: US-ABBOTT-09P-163-0602400-00

PATIENT
  Age: 43 Year
  Sex: Female

DRUGS (6)
  1. KALETRA [Suspect]
     Indication: HIV TEST POSITIVE
     Dosage: DAILY
     Route: 048
     Dates: start: 20010101
  2. TRIZIVIR [Concomitant]
     Indication: HIV TEST POSITIVE
  3. TENOFOVIR [Concomitant]
     Indication: HIV TEST POSITIVE
  4. FOLIC ACID [Concomitant]
     Indication: PRODUCT USED FOR UNKNOWN INDICATION
  5. MULTI-VITAMIN [Concomitant]
     Indication: PRODUCT USED FOR UNKNOWN INDICATION
  6. LORATADINE [Concomitant]
     Indication: SEASONAL ALLERGY
     Dates: start: 20091001

REACTIONS (3)
  - CONDITION AGGRAVATED [None]
  - GASTRIC ULCER [None]
  - MEDICATION RESIDUE [None]
